FAERS Safety Report 9024820 (Version 1)
Quarter: 2012Q4

REPORT INFORMATION
  Report Type: Spontaneous
  Country: US (occurrence: None)
  Receive Date: 20121231
  Receipt Date: 20121231
  Transmission Date: 20130627
  Serious: Yes (Other)
  Sender: FDA-Public Use
  Company Number: UCM201212-000088

PATIENT
  Age: 11 Year
  Sex: Male

DRUGS (2)
  1. CLONIDINE HCL [Suspect]
     Dosage: (max 0.15 mg)
  2. ARGININE HYDROCHLORIDE [Suspect]
     Dosage: (max 30g)
     Route: 042

REACTIONS (2)
  - Haematuria [None]
  - Hypotension [None]
